FAERS Safety Report 20186509 (Version 3)
Quarter: 2022Q2

REPORT INFORMATION
  Report Type: Spontaneous
  Country: JP (occurrence: JP)
  Receive Date: 20211215
  Receipt Date: 20220608
  Transmission Date: 20220721
  Serious: Yes (Other)
  Sender: FDA-Public Use
  Company Number: JP-NOVARTISPH-NVSJ2021JP005975

PATIENT
  Age: 75 Year
  Sex: Male

DRUGS (2)
  1. BEOVU [Suspect]
     Active Substance: BROLUCIZUMAB-DBLL
     Indication: Neovascular age-related macular degeneration
     Dosage: 6 MG
     Route: 031
     Dates: start: 20201222, end: 20201222
  2. BEOVU [Suspect]
     Active Substance: BROLUCIZUMAB-DBLL
     Indication: Polypoidal choroidal vasculopathy

REACTIONS (11)
  - Glaucoma [Not Recovered/Not Resolved]
  - Intraocular pressure increased [Unknown]
  - Iris neovascularisation [Not Recovered/Not Resolved]
  - Blindness transient [Recovering/Resolving]
  - Retinal ischaemia [Unknown]
  - Retinal perivascular sheathing [Recovered/Resolved]
  - Non-infectious endophthalmitis [Recovered/Resolved]
  - Vitreous opacities [Recovered/Resolved]
  - Eye inflammation [Unknown]
  - Neovascularisation [Unknown]
  - Iritis [Unknown]

NARRATIVE: CASE EVENT DATE: 20210107
